FAERS Safety Report 4989503-9 (Version None)
Quarter: 2006Q2

REPORT INFORMATION
  Report Type: 
  Country: None (occurrence: None)
  Receive Date: 20060502
  Receipt Date: 20050930
  Transmission Date: 20061013
  Serious: Yes (Hospitalization)
  Sender: FDA-Public Use
  Company Number: US-MERCK-0510USA01125

PATIENT
  Age: 60 Year
  Sex: Female

DRUGS (1)
  1. VIOXX [Suspect]
     Route: 048

REACTIONS (7)
  - ACUTE MYOCARDIAL INFARCTION [None]
  - CORONARY ARTERY DISEASE [None]
  - DIZZINESS [None]
  - HYPERCHOLESTEROLAEMIA [None]
  - NAUSEA [None]
  - PARAESTHESIA [None]
  - PNEUMONIA [None]
